FAERS Safety Report 7748289-5 (Version None)
Quarter: 2011Q3

REPORT INFORMATION
  Report Type: 
  Country: None (occurrence: None)
  Receive Date: 20110913
  Receipt Date: 20110909
  Transmission Date: 20111222
  Serious: Yes (Hospitalization)
  Sender: FDA-Public Use
  Company Number: US-GILEAD-2011-0043724

PATIENT
  Sex: Female

DRUGS (5)
  1. ADCIRCA [Concomitant]
     Indication: PULMONARY HYPERTENSION
  2. LASIX [Concomitant]
     Indication: OEDEMA
  3. LETAIRIS [Suspect]
     Indication: AORTIC VALVE STENOSIS
  4. LETAIRIS [Suspect]
     Indication: PULMONARY HYPERTENSION
     Route: 048
     Dates: start: 20110707
  5. LETAIRIS [Suspect]
     Indication: LEFT VENTRICULAR FAILURE

REACTIONS (2)
  - HYPONATRAEMIA [None]
  - DYSPNOEA [None]
